FAERS Safety Report 6199173-2 (Version None)
Quarter: 2009Q2

REPORT INFORMATION
  Report Type: 
  Country: None (occurrence: None)
  Receive Date: 20090522
  Receipt Date: 20090319
  Transmission Date: 20091009
  Serious: No
  Sender: FDA-Public Use
  Company Number: A0775411A

PATIENT
  Age: 5 Year
  Sex: Female

DRUGS (1)
  1. VERAMYST [Suspect]
     Dosage: 1PUFF PER DAY
     Route: 045

REACTIONS (6)
  - DYSPNOEA [None]
  - ILL-DEFINED DISORDER [None]
  - NASAL INFLAMMATION [None]
  - NASAL OEDEMA [None]
  - PHARYNGEAL INFLAMMATION [None]
  - PHARYNGEAL OEDEMA [None]
